FAERS Safety Report 9181921 (Version 2)
Quarter: 2013Q2

REPORT INFORMATION
  Report Type: Report from Study
  Country: BE (occurrence: BE)
  Receive Date: 20130322
  Receipt Date: 20130409
  Transmission Date: 20140414
  Serious: Yes (Hospitalization, Other)
  Sender: FDA-Public Use
  Company Number: BE-PFIZER INC-2013089805

PATIENT
  Age: 72 Year
  Sex: Female
  Weight: 66 kg

DRUGS (5)
  1. EXEMESTANE [Suspect]
     Indication: BREAST CANCER
     Dosage: 25 MG, 1X/DAY
     Route: 048
     Dates: start: 20121010, end: 20121106
  2. EVEROLIMUS [Suspect]
     Indication: BREAST CANCER
     Dosage: 10 MG, 1X/DAY
     Route: 048
     Dates: start: 20121010, end: 20121106
  3. L-THYROXIN [Concomitant]
     Indication: HYPOTHYROIDISM
     Dosage: 0.125 MG, ALTERNATE DAY
     Route: 048
     Dates: start: 1993
  4. L-THYROXIN [Concomitant]
     Dosage: 0.150 MG, ALTERNATE DAY
     Route: 048
     Dates: start: 1993
  5. BRONCHOSEDAL [Concomitant]
     Indication: UPPER RESPIRATORY TRACT INFECTION
     Dosage: 2 TABLESPOONS
     Route: 048
     Dates: start: 20121026, end: 20121106

REACTIONS (3)
  - Respiratory failure [Recovered/Resolved]
  - Pneumonitis [Recovered/Resolved]
  - Pleural effusion [Recovered/Resolved]
